FAERS Safety Report 12204548 (Version 1)
Quarter: 2016Q1

REPORT INFORMATION
  Report Type: Spontaneous
  Country: GB (occurrence: GB)
  Receive Date: 20160323
  Receipt Date: 20160323
  Transmission Date: 20160526
  Serious: Yes (Other)
  Sender: FDA-Public Use
  Company Number: GB-SUN PHARMACEUTICAL INDUSTRIES LTD-2016RR-113807

PATIENT

DRUGS (3)
  1. PARACETAMOL [Concomitant]
     Active Substance: ACETAMINOPHEN
     Indication: FRACTURE PAIN
     Dosage: 2 DF, QID
     Route: 048
     Dates: start: 20160224
  2. CODEINE [Suspect]
     Active Substance: CODEINE
     Indication: FRACTURE PAIN
     Dosage: 60 MG, QID
     Route: 048
     Dates: start: 20160224, end: 20160226
  3. IBUPROFEN. [Concomitant]
     Active Substance: IBUPROFEN
     Indication: FRACTURE PAIN
     Dosage: 2 DF, QID
     Route: 048
     Dates: start: 20160224

REACTIONS (15)
  - Crying [Unknown]
  - Dizziness [Recovered/Resolved with Sequelae]
  - Decreased appetite [Unknown]
  - Malaise [Recovered/Resolved with Sequelae]
  - Euphoric mood [Unknown]
  - Dysgeusia [Unknown]
  - Insomnia [Recovered/Resolved]
  - Abnormal faeces [Not Recovered/Not Resolved]
  - Mobility decreased [Recovered/Resolved with Sequelae]
  - Slow speech [Unknown]
  - Abdominal pain [Not Recovered/Not Resolved]
  - Disturbance in attention [Unknown]
  - Dry mouth [Not Recovered/Not Resolved]
  - Headache [Recovered/Resolved with Sequelae]
  - Hypersomnia [Unknown]

NARRATIVE: CASE EVENT DATE: 20160224
